FAERS Safety Report 15949932 (Version 1)
Quarter: 2019Q1

REPORT INFORMATION
  Report Type: Spontaneous
  Country: US (occurrence: US)
  Receive Date: 20190122
  Receipt Date: 20190122
  Transmission Date: 20190417
  Serious: Yes (Hospitalization)
  Sender: FDA-Public Use
  Company Number: None

PATIENT
  Age: 77 Year
  Sex: Female
  Weight: 65.2 kg

DRUGS (1)
  1. LISINOPRIL 10MG TABLETS [Suspect]
     Active Substance: LISINOPRIL
     Indication: HYPERTENSION
     Dates: start: 20190103

REACTIONS (4)
  - Swelling face [None]
  - Rash [None]
  - Dysphagia [None]
  - Dysphonia [None]

NARRATIVE: CASE EVENT DATE: 20190103
